FAERS Safety Report 24949884 (Version 2)
Quarter: 2025Q1

REPORT INFORMATION
  Report Type: Report from Study
  Country: US (occurrence: US)
  Receive Date: 20250210
  Receipt Date: 20250303
  Transmission Date: 20250408
  Serious: No
  Sender: SANDOZ
  Company Number: US-SANDOZ-SDZ2025US007166

PATIENT
  Sex: Male

DRUGS (2)
  1. OMNITROPE [Suspect]
     Active Substance: SOMATROPIN
     Indication: Hypopituitarism
     Dosage: 1.5 MG, QD
     Route: 058
     Dates: start: 20250130
  2. OMNITROPE [Suspect]
     Active Substance: SOMATROPIN
     Indication: Hypopituitarism
     Dosage: 1.5 MG, QD
     Route: 058
     Dates: start: 20250130

REACTIONS (3)
  - Injection site pain [Not Recovered/Not Resolved]
  - Patient dissatisfaction with treatment [Unknown]
  - Product use issue [Unknown]
